FAERS Safety Report 24894368 (Version 5)
Quarter: 2025Q2

REPORT INFORMATION
  Report Type: Spontaneous
  Country: US (occurrence: US)
  Receive Date: 20250128
  Receipt Date: 20250502
  Transmission Date: 20250716
  Serious: Yes (Other)
  Sender: BAYER HEALTHCARE PHARMACEUTICALS INC.
  Company Number: US-BAYER-2025A012495

PATIENT
  Age: 50 Year
  Sex: Female
  Weight: 56 kg

DRUGS (1)
  1. MIRENA [Suspect]
     Active Substance: LEVONORGESTREL
     Indication: Contraception
     Dosage: 20?G/DAY
     Route: 015
     Dates: start: 2017, end: 20250205

REACTIONS (8)
  - Embedded device [Recovered/Resolved]
  - Complication of device removal [None]
  - Menopause [None]
  - Heavy menstrual bleeding [None]
  - Genital herpes [None]
  - Oedema peripheral [None]
  - Complication of device removal [None]
  - Amenorrhoea [None]

NARRATIVE: CASE EVENT DATE: 20210422
